FAERS Safety Report 9461188 (Version 1)
Quarter: 2013Q3

REPORT INFORMATION
  Report Type: Spontaneous
  Country: US (occurrence: None)
  Receive Date: 20130814
  Receipt Date: 20130814
  Transmission Date: 20140515
  Serious: No
  Sender: FDA-Public Use
  Company Number: None

PATIENT
  Age: 63 Year
  Sex: Female
  Weight: 62.3 kg

DRUGS (1)
  1. CLOPIDOGREL [Suspect]
     Indication: CORONARY ARTERY DISEASE
     Dates: start: 20130621

REACTIONS (3)
  - Rash [None]
  - Product substitution issue [None]
  - Therapeutic response unexpected with drug substitution [None]
